FAERS Safety Report 5765345-1 (Version None)
Quarter: 2008Q2

REPORT INFORMATION
  Report Type: 
  Country: None (occurrence: None)
  Receive Date: 20080611
  Receipt Date: 20080603
  Transmission Date: 20081010
  Serious: No
  Sender: FDA-Public Use
  Company Number: JP-ELI_LILLY_AND_COMPANY-JP200806001664

PATIENT
  Age: 52 Year
  Sex: Female

DRUGS (6)
  1. ZYPREXA [Suspect]
     Route: 048
  2. TEGRETOL [Concomitant]
  3. HYDANTOL [Concomitant]
  4. GLYSENNID [Concomitant]
  5. HIRNAMIN [Concomitant]
  6. BLONANSERIN [Concomitant]

REACTIONS (1)
  - WHITE BLOOD CELL COUNT DECREASED [None]
